FAERS Safety Report 5934616-8 (Version None)
Quarter: 2008Q4

REPORT INFORMATION
  Report Type: 
  Country: None (occurrence: None)
  Receive Date: 20081010
  Receipt Date: 20080617
  Transmission Date: 20090506
  Serious: No
  Sender: FDA-Public Use
  Company Number: 2008BM000124

PATIENT
  Age: 32 Year
  Sex: Female
  Weight: 93 kg

DRUGS (5)
  1. KUVAN [Suspect]
     Indication: PHENYLKETONURIA
     Dosage: 1900 MG;QD; 1700 MG;QD;
     Dates: start: 20080517, end: 20080602
  2. KUVAN [Suspect]
     Indication: PHENYLKETONURIA
     Dosage: 1900 MG;QD; 1700 MG;QD;
     Dates: start: 20080603
  3. SERTRALINE [Concomitant]
  4. VITAMIN B-12 [Concomitant]
  5. L-TYROSINE [Concomitant]

REACTIONS (2)
  - DIARRHOEA [None]
  - NAUSEA [None]
